FAERS Safety Report 19126889 (Version 1)
Quarter: 2021Q2

REPORT INFORMATION
  Report Type: Spontaneous
  Country: CH (occurrence: CH)
  Receive Date: 20210412
  Receipt Date: 20210412
  Transmission Date: 20210717
  Serious: Yes (Other)
  Sender: FDA-Public Use
  Company Number: CH-BAXTER-2021BAX006804

PATIENT
  Age: 48 Year
  Sex: Female

DRUGS (3)
  1. 5?FLUOURACIL [Suspect]
     Active Substance: FLUOROURACIL
     Indication: ADJUVANT THERAPY
     Route: 065
     Dates: start: 197605
  2. METHOTREXATE. [Suspect]
     Active Substance: METHOTREXATE
     Indication: ADJUVANT THERAPY
     Route: 065
     Dates: end: 197605
  3. ENDOXAN 1 G. TROCKENSUBSTANZ ZUR INTRAVENOSEN INFUSION [Suspect]
     Active Substance: CYCLOPHOSPHAMIDE
     Indication: ADJUVANT THERAPY
     Route: 065
     Dates: start: 197605

REACTIONS (1)
  - Osteonecrosis [Unknown]
